FAERS Safety Report 5245144-X (Version None)
Quarter: 2007Q1

REPORT INFORMATION
  Report Type: 
  Country: None (occurrence: None)
  Receive Date: 20070223
  Receipt Date: 20070212
  Transmission Date: 20070707
  Serious: Yes (Hospitalization)
  Sender: FDA-Public Use
  Company Number: DE-AMGEN-UK210909

PATIENT
  Sex: Female

DRUGS (4)
  1. NEULASTA [Suspect]
     Indication: CHEMOTHERAPY
     Route: 058
     Dates: start: 20061010
  2. TAXOTERE [Concomitant]
     Dates: start: 20061009
  3. ADRIAMYCIN PFS [Concomitant]
     Dates: start: 20061009
  4. CYCLOPHOSPHAMIDE [Concomitant]
     Dates: start: 20061009

REACTIONS (1)
  - BACK PAIN [None]
